FAERS Safety Report 8012961-2 (Version None)
Quarter: 2011Q4

REPORT INFORMATION
  Report Type: 
  Country: None (occurrence: None)
  Receive Date: 20111229
  Receipt Date: 20111221
  Transmission Date: 20120403
  Serious: Yes (Hospitalization, Other)
  Sender: FDA-Public Use
  Company Number: CH-JNJFOC-20111208963

PATIENT
  Age: 79 Year
  Sex: Male

DRUGS (10)
  1. NEXIUM [Concomitant]
     Route: 048
  2. LEVOTHYROXINE SODIUM [Concomitant]
     Indication: HYPOTHYROIDISM
     Dosage: 50 MCG/D
     Route: 065
     Dates: start: 20110101
  3. RISPERDAL [Suspect]
     Indication: ABNORMAL BEHAVIOUR
     Route: 048
     Dates: start: 20111007
  4. RISPERDAL [Suspect]
     Route: 048
     Dates: start: 20110801, end: 20110801
  5. RISPERDAL [Suspect]
     Indication: PERSONALITY DISORDER
     Route: 048
     Dates: start: 20111007
  6. LISINOPRIL [Suspect]
     Route: 048
     Dates: start: 20110101
  7. GLUCOPHAGE [Concomitant]
     Indication: TYPE 2 DIABETES MELLITUS
     Route: 048
     Dates: start: 20110101
  8. LAXATIVES [Concomitant]
     Indication: PRODUCT USED FOR UNKNOWN INDICATION
     Route: 065
  9. RISPERDAL [Suspect]
     Route: 048
     Dates: start: 20110801, end: 20110801
  10. LISINOPRIL [Suspect]
     Indication: ESSENTIAL HYPERTENSION
     Route: 048

REACTIONS (3)
  - ATRIOVENTRICULAR BLOCK FIRST DEGREE [None]
  - HYPOTENSION [None]
  - BRADYCARDIA [None]
